FAERS Safety Report 7577480-6 (Version None)
Quarter: 2011Q2

REPORT INFORMATION
  Report Type: 
  Country: None (occurrence: None)
  Receive Date: 20110621
  Receipt Date: 20110610
  Transmission Date: 20111010
  Serious: Yes (Hospitalization)
  Sender: FDA-Public Use
  Company Number: GEM-11-01

PATIENT
  Age: 58 Year
  Sex: Male

DRUGS (3)
  1. HYDROXYZINE [Concomitant]
  2. GEMFIBROZIL [Suspect]
     Indication: HYPERTRIGLYCERIDAEMIA
     Dosage: ORAL 900MG/DAY
     Route: 048
  3. NEDOCROMIL SODIUM [Concomitant]

REACTIONS (4)
  - ANGIOEDEMA [None]
  - FACE OEDEMA [None]
  - THROAT IRRITATION [None]
  - DYSPHAGIA [None]
